FAERS Safety Report 18498431 (Version 10)
Quarter: 2021Q3

REPORT INFORMATION
  Report Type: Report from Study
  Country: AT (occurrence: AT)
  Receive Date: 20201112
  Receipt Date: 20210708
  Transmission Date: 20211014
  Serious: Yes (Hospitalization, Other)
  Sender: FDA-Public Use
  Company Number: AT-EXELIXIS-XL18420034664

PATIENT
  Age: 65 Year
  Sex: Male

DRUGS (23)
  1. XL184 [Suspect]
     Active Substance: CABOZANTINIB
     Indication: HEPATOCELLULAR CARCINOMA
     Dosage: 40 MG, QD
     Route: 048
     Dates: start: 20200720, end: 20200807
  2. DILATREND [Concomitant]
     Active Substance: CARVEDILOL
  3. SIMVASTATIN. [Concomitant]
     Active Substance: SIMVASTATIN
  4. THROMBO ASS [Concomitant]
     Active Substance: ASPIRIN
  5. TEMESTA [Concomitant]
  6. INHIXA [Concomitant]
     Active Substance: ENOXAPARIN SODIUM
  7. MAGNESIUM VERLA [Concomitant]
     Active Substance: MAGNESIUM
  8. INSPRA [Concomitant]
     Active Substance: EPLERENONE
  9. ATEZOLIZUMAB. [Suspect]
     Active Substance: ATEZOLIZUMAB
     Indication: HEPATOCELLULAR CARCINOMA
     Dosage: 1200 MG, Q3WEEKS
     Route: 042
     Dates: start: 20200720, end: 20201104
  10. ATEZOLIZUMAB. [Suspect]
     Active Substance: ATEZOLIZUMAB
     Dosage: 1200 MG, Q3WEEKS
     Route: 042
     Dates: start: 20201125
  11. PANTOLOC [Concomitant]
     Active Substance: PANTOPRAZOLE SODIUM
  12. LASIX [Concomitant]
     Active Substance: FUROSEMIDE
  13. ALLOPURINOL. [Concomitant]
     Active Substance: ALLOPURINOL
  14. LAEVOLAC [Concomitant]
     Active Substance: LACTULOSE
  15. APREDNISLON [Concomitant]
     Active Substance: PREDNISOLONE
     Dosage: 50 MG, QD
  16. XL184 [Suspect]
     Active Substance: CABOZANTINIB
     Dosage: 20 MG, QD
     Route: 048
     Dates: start: 20201014, end: 20201020
  17. TRAJENTA [Concomitant]
     Active Substance: LINAGLIPTIN
  18. NORVASC [Concomitant]
     Active Substance: AMLODIPINE BESYLATE
  19. NOVALGIN [Concomitant]
  20. KALIORAL [Concomitant]
  21. OLEOVIT [Concomitant]
  22. EPLERENONE. [Concomitant]
     Active Substance: EPLERENONE
  23. THYREX [Concomitant]
     Active Substance: LEVOTHYROXINE SODIUM

REACTIONS (2)
  - Hyperglycaemia [Recovered/Resolved]
  - Inflammation [Recovered/Resolved]

NARRATIVE: CASE EVENT DATE: 20201104
